FAERS Safety Report 15431017 (Version 5)
Quarter: 2019Q4

REPORT INFORMATION
  Report Type: Report from Study
  Country: PT (occurrence: PT)
  Receive Date: 20180926
  Receipt Date: 20191203
  Transmission Date: 20200122
  Serious: Yes (Life-Threatening, Other)
  Sender: FDA-Public Use
  Company Number: PT-VIIV HEALTHCARE LIMITED-PT2018172076

PATIENT
  Age: 30 Year
  Sex: Male

DRUGS (26)
  1. DIDANOSINE. [Suspect]
     Active Substance: DIDANOSINE
     Indication: HEPATITIS C
     Dosage: 1 ML OF TRIAMCINOLONE 40 MG INJECTED
     Route: 048
  2. ALPRAZOLAM. [Suspect]
     Active Substance: ALPRAZOLAM
     Indication: HEPATITIS C
     Dosage: 1 ML OF TRIAMCINOLONE 40 MG INJECTED
     Route: 048
  3. TRAMADOL. [Suspect]
     Active Substance: TRAMADOL
     Indication: HEPATITIS C
     Dosage: 1 ML OF TRIAMCINOLONE 40 MG INJECTED
     Route: 048
  4. DIDANOSINE. [Suspect]
     Active Substance: DIDANOSINE
     Indication: CHRONIC HEPATITIS C
  5. LOPINAVIR+RITONAVIR [Suspect]
     Active Substance: LOPINAVIR\RITONAVIR
     Indication: HEPATITIS C
     Dosage: 1 ML OF TRIAMCINOLONE 40 MG INJECTED
     Route: 048
  6. BUPRENORPHINE. [Suspect]
     Active Substance: BUPRENORPHINE
     Indication: HEPATITIS C
     Dosage: 1 ML OF TRIAMCINOLONE 40 MG INJECTED
     Route: 048
  7. FLURAZEPAM [Suspect]
     Active Substance: FLURAZEPAM HYDROCHLORIDE
     Indication: CHRONIC HEPATITIS C
  8. OXAZEPAM. [Suspect]
     Active Substance: OXAZEPAM
     Indication: PRODUCT USED FOR UNKNOWN INDICATION
     Dosage: 1 ML OF TRIAMCINOLONE 40 MG INJECTED
     Route: 048
  9. LOPINAVIR+RITONAVIR [Suspect]
     Active Substance: LOPINAVIR\RITONAVIR
     Indication: CHRONIC HEPATITIS C
  10. TRAMADOL. [Suspect]
     Active Substance: TRAMADOL
     Indication: CHRONIC HEPATITIS C
  11. AMPHOTERICIN B. [Suspect]
     Active Substance: AMPHOTERICIN B
     Indication: HIV INFECTION
  12. FLURAZEPAM [Suspect]
     Active Substance: FLURAZEPAM HYDROCHLORIDE
     Indication: HEPATITIS C
     Dosage: 1 ML OF TRIAMCINOLONE 40 MG INJECTED
     Route: 048
  13. ZIDOVUDINE. [Suspect]
     Active Substance: ZIDOVUDINE
     Indication: HEPATITIS C
     Dosage: UNK
     Route: 048
  14. DIDANOSINE. [Suspect]
     Active Substance: DIDANOSINE
     Indication: HIV INFECTION
  15. BUPRENORPHINE. [Suspect]
     Active Substance: BUPRENORPHINE
     Indication: HIV INFECTION
  16. BUPRENORPHINE. [Suspect]
     Active Substance: BUPRENORPHINE
     Indication: CHRONIC HEPATITIS C
  17. ZIDOVUDINE. [Suspect]
     Active Substance: ZIDOVUDINE
     Indication: CHRONIC HEPATITIS C
  18. LOPINAVIR+RITONAVIR [Suspect]
     Active Substance: LOPINAVIR\RITONAVIR
     Indication: HIV INFECTION
  19. ALPRAZOLAM. [Suspect]
     Active Substance: ALPRAZOLAM
     Indication: HIV INFECTION
  20. ALPRAZOLAM. [Suspect]
     Active Substance: ALPRAZOLAM
     Indication: CHRONIC HEPATITIS C
  21. TRIAMCINOLONE [Suspect]
     Active Substance: TRIAMCINOLONE
     Indication: PRODUCT USED FOR UNKNOWN INDICATION
     Dosage: 1 ML OF TRIAMCINOLONE 40 MG INJECTED
     Route: 051
  22. AMPHOTERICIN B. [Suspect]
     Active Substance: AMPHOTERICIN B
     Indication: CHRONIC HEPATITIS C
  23. FLURAZEPAM [Suspect]
     Active Substance: FLURAZEPAM HYDROCHLORIDE
     Indication: HIV INFECTION
  24. ZIDOVUDINE. [Suspect]
     Active Substance: ZIDOVUDINE
     Indication: HIV INFECTION
  25. AMPHOTERICIN B. [Suspect]
     Active Substance: AMPHOTERICIN B
     Indication: HEPATITIS C
     Dosage: 1 ML OF TRIAMCINOLONE 40 MG INJECTED
     Route: 048
  26. TRAMADOL. [Suspect]
     Active Substance: TRAMADOL
     Indication: HIV INFECTION

REACTIONS (5)
  - Hepatic fibrosis [Unknown]
  - Drug-induced liver injury [Recovered/Resolved]
  - Drug abuse [Recovered/Resolved]
  - Product use issue [Recovered/Resolved]
  - Off label use [Recovered/Resolved]
